FAERS Safety Report 6310897-6 (Version None)
Quarter: 2009Q3

REPORT INFORMATION
  Report Type: 
  Country: None (occurrence: None)
  Receive Date: 20090812
  Receipt Date: 20090803
  Transmission Date: 20100115
  Serious: Yes (Death)
  Sender: FDA-Public Use
  Company Number: GXKR2009CN08835

PATIENT
  Age: 31 Year
  Sex: Female

DRUGS (5)
  1. PREDNISONE            (PREDNISONE) [Suspect]
     Indication: SYSTEMIC LUPUS ERYTHEMATOSUS
  2. CYCLOSPORINE [Suspect]
     Indication: SYSTEMIC LUPUS ERYTHEMATOSUS
  3. RITUXIMAB (RITUXIMAB) [Suspect]
     Indication: SYSTEMIC LUPUS ERYTHEMATOSUS
     Dosage: 375 MG/M2, QW, 3-4 CONSECUTIVE WEEKS, INFUSION
  4. RITUXIMAB (RITUXIMAB) [Suspect]
     Indication: THROMBOCYTOPENIA
     Dosage: 375 MG/M2, QW, 3-4 CONSECUTIVE WEEKS, INFUSION
  5. CYCLOPHOSPHAMIDE [Suspect]
     Indication: SYSTEMIC LUPUS ERYTHEMATOSUS

REACTIONS (1)
  - PNEUMOCYSTIS JIROVECI PNEUMONIA [None]
